FAERS Safety Report 10301848 (Version 3)
Quarter: 2015Q3

REPORT INFORMATION
  Report Type: Spontaneous
  Country: US (occurrence: US)
  Receive Date: 20140714
  Receipt Date: 20150817
  Transmission Date: 20151125
  Serious: No
  Sender: FDA-Public Use
  Company Number: US-GILEAD-2014-0107503

PATIENT
  Age: 42 Year
  Sex: Male

DRUGS (4)
  1. LETAIRIS [Suspect]
     Active Substance: AMBRISENTAN
     Indication: PRODUCT USED FOR UNKNOWN INDICATION
     Dosage: 5 MG, QD
     Route: 065
     Dates: start: 201405
  2. REMODULIN [Concomitant]
     Active Substance: TREPROSTINIL
  3. VIAGRA [Concomitant]
     Active Substance: SILDENAFIL CITRATE
  4. LETAIRIS [Suspect]
     Active Substance: AMBRISENTAN
     Dosage: 10 MG, QD
     Route: 065
     Dates: start: 20140619

REACTIONS (4)
  - Unevaluable event [Unknown]
  - Catheter site macule [Unknown]
  - Infusion site erythema [Unknown]
  - Unevaluable event [Unknown]

NARRATIVE: CASE EVENT DATE: 201310
